FAERS Safety Report 4586877-8 (Version None)
Quarter: 2005Q1

REPORT INFORMATION
  Report Type: 
  Country: None (occurrence: None)
  Receive Date: 20050216
  Receipt Date: 20050216
  Transmission Date: 20050727
  Serious: Yes (Other)
  Sender: FDA-Public Use
  Company Number: None

PATIENT
  Sex: Female
  Weight: 74.8435 kg

DRUGS (1)
  1. GLYCOLAX [Suspect]
     Indication: CONSTIPATION
     Dosage: 3 GM BID PO
     Route: 048
     Dates: start: 20041201, end: 20050101

REACTIONS (4)
  - ABDOMINAL PAIN [None]
  - FATIGUE [None]
  - NAUSEA [None]
  - RECTAL HAEMORRHAGE [None]
